FAERS Safety Report 26092420 (Version 1)
Quarter: 2025Q4

REPORT INFORMATION
  Report Type: Spontaneous
  Country: EU (occurrence: EU)
  Receive Date: 20251126
  Receipt Date: 20251126
  Transmission Date: 20260117
  Serious: Yes (Other)
  Sender: NOVARTIS
  Company Number: EU-002147023-NVSC2025FR180486

PATIENT
  Age: 37 Year
  Sex: Male

DRUGS (1)
  1. COSENTYX [Suspect]
     Active Substance: SECUKINUMAB
     Indication: Axial spondyloarthritis
     Dosage: 150 MILLIGRAM PER MILLILITRE, QMO (1 INJECTION/ MONTH)
     Route: 065
     Dates: start: 20250602

REACTIONS (3)
  - Headache [Unknown]
  - Presyncope [Unknown]
  - Hot flush [Unknown]
